FAERS Safety Report 18746075 (Version 1)
Quarter: 2021Q1

REPORT INFORMATION
  Report Type: Spontaneous
  Country: US (occurrence: US)
  Receive Date: 20210115
  Receipt Date: 20210115
  Transmission Date: 20210419
  Serious: Yes (Other)
  Sender: FDA-Public Use
  Company Number: US-CELLTRION-2021-US-000399

PATIENT
  Age: 31 Year
  Sex: Male

DRUGS (1)
  1. LAMOTRIGINE (NON?SPECIFIC) [Suspect]
     Active Substance: LAMOTRIGINE
     Indication: EPILEPSY

REACTIONS (2)
  - Haemophagocytic lymphohistiocytosis [Unknown]
  - Liver injury [Unknown]
